FAERS Safety Report 5277410-6 (Version None)
Quarter: 2007Q1

REPORT INFORMATION
  Report Type: 
  Country: None (occurrence: None)
  Receive Date: 20061213
  Receipt Date: 20040923
  Transmission Date: 20070707
  Serious: No
  Sender: FDA-Public Use
  Company Number: 2004UW06533

PATIENT
  Age: 49 Year
  Sex: Female

DRUGS (4)
  1. SEROQUEL [Suspect]
     Indication: SCHIZOPHRENIA
     Dosage: 200 MG IN THE AM AND 300 MG IN THE PM
     Dates: start: 20030101
  2. PROZAC [Concomitant]
  3. CELEBREX [Concomitant]
  4. PLAQUENIL [Concomitant]

REACTIONS (17)
  - ACNE [None]
  - APHTHOUS STOMATITIS [None]
  - BLOOD CREATININE INCREASED [None]
  - CATARACT [None]
  - CONFUSIONAL STATE [None]
  - DERMATITIS CONTACT [None]
  - DRY MOUTH [None]
  - DYSPNOEA [None]
  - EPISTAXIS [None]
  - HYPOTHYROIDISM [None]
  - JOINT STIFFNESS [None]
  - PALPITATIONS [None]
  - PSORIASIS [None]
  - RASH [None]
  - RHEUMATOID ARTHRITIS [None]
  - TINEA PEDIS [None]
  - VISUAL DISTURBANCE [None]
